FAERS Safety Report 5238109-5 (Version None)
Quarter: 2007Q1

REPORT INFORMATION
  Report Type: 
  Country: None (occurrence: None)
  Receive Date: 20070215
  Receipt Date: 20070206
  Transmission Date: 20070707
  Serious: Yes (Other)
  Sender: FDA-Public Use
  Company Number: US-JNJFOC-20070202026

PATIENT
  Sex: Female
  Weight: 53.07 kg

DRUGS (6)
  1. FENTANYL TRANSDERMAL SYSTEM [Suspect]
     Indication: BONE DISORDER
     Route: 062
  2. SYNTHROID [Concomitant]
     Indication: THYROIDECTOMY
     Route: 048
  3. ACIPHEX [Concomitant]
     Route: 048
  4. TRAZODONE HCL [Concomitant]
     Route: 048
  5. ULTRAM [Concomitant]
     Indication: BREAKTHROUGH PAIN
     Route: 048
  6. CALCIUM [Concomitant]
     Route: 048

REACTIONS (1)
  - BLADDER NEOPLASM [None]
